FAERS Safety Report 25770621 (Version 1)
Quarter: 2025Q3

REPORT INFORMATION
  Report Type: Spontaneous
  Country: US (occurrence: US)
  Receive Date: 20250908
  Receipt Date: 20250908
  Transmission Date: 20251021
  Serious: No
  Sender: CHIESI
  Company Number: US-CHIESI-2024CHF07781

PATIENT
  Sex: Female
  Weight: 50 kg

DRUGS (12)
  1. FERRIPROX [Suspect]
     Active Substance: DEFERIPRONE
     Indication: Haemochromatosis
     Dosage: 1000 MILLIGRAM, BID
     Route: 048
     Dates: start: 20240726
  2. FERRIPROX [Suspect]
     Active Substance: DEFERIPRONE
     Indication: Red blood cell transfusion
  3. FERRIPROX [Suspect]
     Active Substance: DEFERIPRONE
     Indication: Sickle cell disease
  4. CALCITRIOL [Concomitant]
     Active Substance: CALCITRIOL
     Indication: Product used for unknown indication
  5. FOLIC ACID [Concomitant]
     Active Substance: FOLIC ACID
     Indication: Product used for unknown indication
  6. FUROSEMIDE [Concomitant]
     Active Substance: FUROSEMIDE
     Indication: Product used for unknown indication
  7. GABAPENTIN [Concomitant]
     Active Substance: GABAPENTIN
     Indication: Product used for unknown indication
  8. OXYCONTIN [Concomitant]
     Active Substance: OXYCODONE HYDROCHLORIDE
     Indication: Product used for unknown indication
  9. SODIUM BICARBONATE [Concomitant]
     Active Substance: SODIUM BICARBONATE
     Indication: Product used for unknown indication
  10. TRAMADOL [Concomitant]
     Active Substance: TRAMADOL
     Indication: Product used for unknown indication
  11. VITAMIN B12 [Concomitant]
     Active Substance: CYANOCOBALAMIN
     Indication: Product used for unknown indication
  12. VITAMIN D [Concomitant]
     Active Substance: VITAMIN D NOS
     Indication: Product used for unknown indication

REACTIONS (7)
  - Cushingoid [Not Recovered/Not Resolved]
  - Lymphoedema [Not Recovered/Not Resolved]
  - Visual impairment [Recovering/Resolving]
  - Nasopharyngitis [Recovering/Resolving]
  - Dyspnoea [Not Recovered/Not Resolved]
  - Cough [Recovered/Resolved]
  - Off label use [Not Recovered/Not Resolved]

NARRATIVE: CASE EVENT DATE: 20240101
